FAERS Safety Report 22530383 (Version 3)
Quarter: 2023Q2

REPORT INFORMATION
  Report Type: Spontaneous
  Country: CN (occurrence: CN)
  Receive Date: 20230607
  Receipt Date: 20230620
  Transmission Date: 20230722
  Serious: Yes (Other)
  Sender: FDA-Public Use
  Company Number: CN-009507513-2305CHN010495

PATIENT
  Age: 78 Year
  Sex: Female

DRUGS (1)
  1. LAGEVRIO [Suspect]
     Active Substance: MOLNUPIRAVIR
     Dosage: FORMULATION: CAPSULE OF 0.2 G X 40S, 4 CAPSULES
     Route: 048
     Dates: start: 20230524, end: 20230524

REACTIONS (5)
  - Product contamination microbial [Unknown]
  - Exposure to fungus [Unknown]
  - Poor quality product administered [Unknown]
  - Product quality issue [Unknown]
  - Product packaging issue [Unknown]

NARRATIVE: CASE EVENT DATE: 20230524
